FAERS Safety Report 4488781-2 (Version None)
Quarter: 2004Q4

REPORT INFORMATION
  Report Type: 
  Country: None (occurrence: None)
  Receive Date: 20041029
  Receipt Date: 20041019
  Transmission Date: 20050328
  Serious: Yes (Hospitalization, Other)
  Sender: FDA-Public Use
  Company Number: US-JNJFOC-20040800596

PATIENT
  Sex: Male
  Weight: 50.35 kg

DRUGS (3)
  1. REMICADE [Suspect]
     Indication: CROHN'S DISEASE
     Dosage: TREATED FOR SEVERAL YEARS
     Route: 042
  2. IMURAN [Concomitant]
  3. STEROID [Concomitant]

REACTIONS (1)
  - NOCARDIOSIS [None]
